FAERS Safety Report 5285046-6 (Version None)
Quarter: 2007Q2

REPORT INFORMATION
  Report Type: 
  Country: None (occurrence: None)
  Receive Date: 20070403
  Receipt Date: 20061004
  Transmission Date: 20071010
  Serious: Yes (Death)
  Sender: FDA-Public Use
  Company Number: US-PFIZER INC-2007019548

PATIENT
  Age: 20 Year
  Sex: Female

DRUGS (1)
  1. XANAX [Suspect]
     Dosage: TEXT:UNKNOWN

REACTIONS (1)
  - DEATH [None]
